FAERS Safety Report 5974158-7 (Version None)
Quarter: 2008Q4

REPORT INFORMATION
  Report Type: 
  Country: None (occurrence: None)
  Receive Date: 20081201
  Receipt Date: 20081124
  Transmission Date: 20090506
  Serious: Yes (Other)
  Sender: FDA-Public Use
  Company Number: US-PFIZER INC-2006033847

PATIENT
  Sex: Male
  Weight: 94 kg

DRUGS (10)
  1. VIAGRA [Suspect]
     Indication: SEXUAL DYSFUNCTION
     Route: 048
     Dates: start: 19980515, end: 20001012
  2. VIAGRA [Suspect]
     Indication: ERECTILE DYSFUNCTION
  3. FOLIC ACID [Concomitant]
     Route: 048
  4. PRILOSEC [Concomitant]
     Route: 048
  5. ASPIRIN [Concomitant]
     Route: 048
  6. ASCORBIC ACID [Concomitant]
     Route: 048
  7. VITAMIN E [Concomitant]
     Route: 048
  8. SELENIUM [Concomitant]
     Route: 048
  9. MULTI-VITAMINS [Concomitant]
     Route: 048
  10. WELLBUTRIN [Concomitant]

REACTIONS (4)
  - BLINDNESS UNILATERAL [None]
  - DEPRESSION [None]
  - NIGHT BLINDNESS [None]
  - OPTIC ISCHAEMIC NEUROPATHY [None]
